FAERS Safety Report 7342717-5 (Version None)
Quarter: 2011Q1

REPORT INFORMATION
  Report Type: 
  Country: None (occurrence: None)
  Receive Date: 20110310
  Receipt Date: 20110307
  Transmission Date: 20110831
  Serious: Yes (Other)
  Sender: FDA-Public Use
  Company Number: US-BAYER-2011-021248

PATIENT
  Sex: Female

DRUGS (2)
  1. YAZ [Suspect]
     Indication: ORAL CONTRACEPTION
  2. YASMIN [Suspect]
     Indication: ORAL CONTRACEPTION

REACTIONS (1)
  - GALLBLADDER INJURY [None]
